FAERS Safety Report 6769353-3 (Version None)
Quarter: 2010Q2

REPORT INFORMATION
  Report Type: 
  Country: None (occurrence: None)
  Receive Date: 20100615
  Receipt Date: 20100604
  Transmission Date: 20101027
  Serious: Yes (Death)
  Sender: FDA-Public Use
  Company Number: US-CELGENEUS-163-21880-10051252

PATIENT
  Sex: Male

DRUGS (3)
  1. REVLIMID [Suspect]
     Indication: MULTIPLE MYELOMA
     Route: 048
     Dates: start: 20091101
  2. REVLIMID [Suspect]
     Dosage: 5-10 MG
     Route: 048
     Dates: start: 20070109
  3. REVLIMID [Suspect]
     Route: 048
     Dates: start: 20060901

REACTIONS (1)
  - MULTIPLE MYELOMA [None]
